FAERS Safety Report 4958420-2 (Version None)
Quarter: 2006Q1

REPORT INFORMATION
  Report Type: 
  Country: None (occurrence: None)
  Receive Date: 20060330
  Receipt Date: 20060317
  Transmission Date: 20060701
  Serious: Yes (Other)
  Sender: FDA-Public Use
  Company Number: JP-AVENTIS-200610878JP

PATIENT
  Age: 36 Year
  Sex: Female

DRUGS (3)
  1. ALLEGRA [Suspect]
     Indication: RHINITIS ALLERGIC
     Route: 048
     Dates: start: 20060310, end: 20060316
  2. ALLELOCK [Concomitant]
     Indication: RHINITIS ALLERGIC
     Dates: start: 20060218, end: 20060304
  3. CELESTAMINE TAB [Concomitant]
     Indication: RHINITIS ALLERGIC
     Dates: start: 20060303, end: 20060309

REACTIONS (5)
  - ASTHENIA [None]
  - HYPERSENSITIVITY [None]
  - MALAISE [None]
  - NAUSEA [None]
  - PALPITATIONS [None]
